FAERS Safety Report 13005836 (Version 1)
Quarter: 2016Q4

REPORT INFORMATION
  Report Type: Spontaneous
  Country: DE (occurrence: DE)
  Receive Date: 20161207
  Receipt Date: 20161207
  Transmission Date: 20170207
  Serious: Yes (Death)
  Sender: FDA-Public Use
  Company Number: DE-PFIZER INC-2016558880

PATIENT
  Age: 85 Year

DRUGS (15)
  1. AMPICILLIN AND SULBACTAM [Concomitant]
     Active Substance: AMPICILLIN SODIUM\SULBACTAM SODIUM
     Indication: CLOSTRIDIUM DIFFICILE INFECTION
     Dosage: UNK
  2. ESOMEPRAZOLE [Concomitant]
     Active Substance: ESOMEPRAZOLE
     Dosage: UNK
  3. NACL [Concomitant]
     Active Substance: SODIUM CHLORIDE
     Dosage: UNK
  4. MEROPENEM. [Suspect]
     Active Substance: MEROPENEM
     Indication: PNEUMONIA ASPIRATION
     Dosage: UNK
  5. PIPERACILLIN/TAZOBACTAM [Suspect]
     Active Substance: PIPERACILLIN SODIUM\TAZOBACTAM SODIUM
     Indication: PNEUMONIA ASPIRATION
     Dosage: UNK
  6. RAMIPRIL. [Concomitant]
     Active Substance: RAMIPRIL
     Dosage: 5 MG, 2X/DAY
  7. VANCOMYCIN HCL [Suspect]
     Active Substance: VANCOMYCIN HYDROCHLORIDE
     Indication: PNEUMONIA ASPIRATION
     Dosage: UNK
  8. RAMIPRIL. [Concomitant]
     Active Substance: RAMIPRIL
     Indication: CLOSTRIDIUM DIFFICILE INFECTION
     Dosage: 5 MG, DAILY
  9. AMLODIPINE [Concomitant]
     Active Substance: AMLODIPINE BESYLATE
     Indication: CLOSTRIDIUM DIFFICILE INFECTION
     Dosage: 5 MG, DAILY
  10. URAPIDIL [Concomitant]
     Active Substance: URAPIDIL
     Indication: CLOSTRIDIUM DIFFICILE INFECTION
     Dosage: 60 MG, 2X/DAY
     Route: 042
  11. TORASEMID [Concomitant]
     Active Substance: TORSEMIDE
     Indication: CLOSTRIDIUM DIFFICILE INFECTION
     Dosage: 10 MG, DAILY
  12. MACROGOL [Concomitant]
     Active Substance: POLYETHYLENE GLYCOLS
     Dosage: SEMIDAILY
  13. METOPROLOL. [Concomitant]
     Active Substance: METOPROLOL
     Indication: CLOSTRIDIUM DIFFICILE INFECTION
     Dosage: 47.5 MG, 2X/DAY
  14. CIPROFLOXACIN. [Suspect]
     Active Substance: CIPROFLOXACIN
     Indication: PNEUMONIA ASPIRATION
     Dosage: UNK
  15. SPIRONOLACTONE. [Concomitant]
     Active Substance: SPIRONOLACTONE
     Indication: CLOSTRIDIUM DIFFICILE INFECTION
     Dosage: 25 MG, DAILY

REACTIONS (4)
  - Hypertension [None]
  - Drug ineffective [Fatal]
  - Condition aggravated [None]
  - Pneumonia aspiration [None]
